FAERS Safety Report 6845494-7 (Version None)
Quarter: 2010Q3

REPORT INFORMATION
  Report Type: 
  Country: None (occurrence: None)
  Receive Date: 20100715
  Receipt Date: 20070827
  Transmission Date: 20110219
  Serious: No
  Sender: FDA-Public Use
  Company Number: US-PFIZER INC-2007070974

PATIENT
  Sex: Female
  Weight: 79.5 kg

DRUGS (6)
  1. CHANTIX [Suspect]
     Indication: SMOKING CESSATION THERAPY
     Dates: start: 20070720
  2. ANTIHYPERTENSIVES [Concomitant]
     Indication: HYPERTENSION
  3. THYROID TAB [Concomitant]
     Indication: HYPOTHYROIDISM
  4. ACETYLSALICYLIC ACID [Concomitant]
  5. VITAMINS [Concomitant]
  6. ALL OTHER THERAPEUTIC PRODUCTS [Concomitant]

REACTIONS (4)
  - DRUG INTOLERANCE [None]
  - NAUSEA [None]
  - RETCHING [None]
  - VOMITING [None]
